FAERS Safety Report 7792954-0 (Version None)
Quarter: 2011Q4

REPORT INFORMATION
  Report Type: 
  Country: None (occurrence: None)
  Receive Date: 20111003
  Receipt Date: 20110927
  Transmission Date: 20120403
  Serious: Yes (Hospitalization, Other)
  Sender: FDA-Public Use
  Company Number: PHHY2011US64642

PATIENT
  Age: 41 Year
  Sex: Male

DRUGS (4)
  1. LORATADINE [Concomitant]
     Dosage: 10 MG, QD
  2. TRILEPTAL [Suspect]
     Indication: BIPOLAR DISORDER
     Dosage: UNK UKN, UNK
     Dates: start: 20080101
  3. NEXIUM [Concomitant]
     Dosage: 40 MG, QD
  4. OXCARBAZEPINE [Suspect]
     Dosage: UNK UKN, UNK

REACTIONS (6)
  - CEREBROVASCULAR ACCIDENT [None]
  - ANXIETY [None]
  - SUICIDAL IDEATION [None]
  - SOMNOLENCE [None]
  - RHINORRHOEA [None]
  - THERAPEUTIC RESPONSE DECREASED [None]
